FAERS Safety Report 23277306 (Version 1)
Quarter: 2023Q4

REPORT INFORMATION
  Report Type: Spontaneous
  Country: US (occurrence: US)
  Receive Date: 20231208
  Receipt Date: 20231208
  Transmission Date: 20240110
  Serious: No
  Sender: FDA-Public Use
  Company Number: US-PFIZER INC-202300419066

PATIENT
  Age: 78 Year
  Sex: Female
  Weight: 104.31 kg

DRUGS (3)
  1. PAXLOVID [Suspect]
     Active Substance: NIRMATRELVIR\RITONAVIR
     Indication: COVID-19 treatment
     Dosage: UNK, SINGLE
  2. CELEBREX [Concomitant]
     Active Substance: CELECOXIB
  3. CELECOXIB [Concomitant]
     Active Substance: CELECOXIB

REACTIONS (4)
  - Vomiting [Unknown]
  - Abdominal pain [Unknown]
  - Abdominal pain upper [Unknown]
  - Drug intolerance [Unknown]
